FAERS Safety Report 4759442-7 (Version None)
Quarter: 2005Q3

REPORT INFORMATION
  Report Type: 
  Country: None (occurrence: None)
  Receive Date: 20050831
  Receipt Date: 20050818
  Transmission Date: 20060218
  Serious: Yes (Other)
  Sender: FDA-Public Use
  Company Number: 2005116228

PATIENT
  Age: 74 Year
  Sex: Male
  Weight: 83.0083 kg

DRUGS (4)
  1. VIAGRA [Suspect]
     Indication: ERECTILE DYSFUNCTION
     Dosage: 50 MG (50 MG, AS NECESSARY), ORAL/5 YEARS AGO
     Route: 048
  2. VERAPAMIL HYDROCHLORIDE [Suspect]
     Indication: BLOOD PRESSURE
     Dosage: (360 MG)
  3. PRILOSEC [Concomitant]
  4. ANTIHYPERTENSIVES (ANTIHYPERTENSIVES) [Concomitant]

REACTIONS (5)
  - DRUG INEFFECTIVE [None]
  - FLUSHING [None]
  - HEART RATE DECREASED [None]
  - PROSTATE CANCER [None]
  - SEDATION [None]
